FAERS Safety Report 9721524 (Version 7)
Quarter: 2014Q1

REPORT INFORMATION
  Report Type: Report from Study
  Country: GB (occurrence: GB)
  Receive Date: 20131130
  Receipt Date: 20140320
  Transmission Date: 20141002
  Serious: Yes (Hospitalization)
  Sender: FDA-Public Use
  Company Number: GB-BRISTOL-MYERS SQUIBB COMPANY-19847334

PATIENT
  Age: 51 Year
  Sex: Female
  Weight: 79 kg

DRUGS (14)
  1. IPILIMUMAB [Suspect]
     Indication: SMALL CELL LUNG CANCER
     Dosage: RECENT DOSE :06NOV13,27NOV13
     Dates: start: 20131016, end: 20131127
  2. CARBOPLATIN [Suspect]
     Indication: SMALL CELL LUNG CANCER
     Dosage: RECENT DOSE :06NOV13
     Dates: start: 20130821, end: 20131106
  3. ETOPOSIDE [Suspect]
     Indication: SMALL CELL LUNG CANCER
     Dosage: RECENT DOSE :06NOV13
     Dates: start: 20130821, end: 20131106
  4. METFORMIN [Concomitant]
     Indication: DIABETES MELLITUS
     Route: 048
  5. FLUOXETINE [Concomitant]
     Route: 048
  6. SALBUTAMOL [Concomitant]
  7. BECLOMETHASONE [Concomitant]
  8. CYCLIZINE [Concomitant]
     Indication: NAUSEA
     Route: 048
     Dates: start: 20131110
  9. FLUCONAZOLE [Concomitant]
     Indication: ORAL CANDIDIASIS
     Route: 048
     Dates: start: 20131020
  10. TRIMETHOPRIM [Concomitant]
     Indication: URINARY TRACT INFECTION
     Dates: start: 20131104
  11. CETRIZINE [Concomitant]
     Dates: start: 20131104
  12. HYDROCORTISONE CREAM [Concomitant]
     Route: 061
     Dates: start: 20131104
  13. ORAMORPH [Concomitant]
     Indication: PAIN
     Route: 048
     Dates: start: 20130801
  14. BUPRENORPHINE [Concomitant]
     Indication: PAIN
     Dates: start: 20130801

REACTIONS (4)
  - Colitis [Recovered/Resolved]
  - Dyspnoea [Recovered/Resolved]
  - Fatigue [Not Recovered/Not Resolved]
  - Nausea [Not Recovered/Not Resolved]
